FAERS Safety Report 16738924 (Version 1)
Quarter: 2019Q3

REPORT INFORMATION
  Report Type: Spontaneous
  Country: DE (occurrence: DE)
  Receive Date: 20190826
  Receipt Date: 20190826
  Transmission Date: 20191005
  Serious: Yes (Other)
  Sender: FDA-Public Use
  Company Number: DE-TEVA-2019-DE-1096738

PATIENT
  Age: 64 Year
  Sex: Female

DRUGS (1)
  1. METOPROLOL 200 MG RATIOPHARM [Suspect]
     Active Substance: METOPROLOL
     Route: 048
     Dates: start: 201903, end: 201904

REACTIONS (5)
  - Dyspnoea [Recovered/Resolved]
  - Extrasystoles [Recovered/Resolved]
  - Heart rate increased [Recovered/Resolved]
  - Blood pressure increased [Recovered/Resolved]
  - Hyperhidrosis [Recovered/Resolved]

NARRATIVE: CASE EVENT DATE: 201903
